FAERS Safety Report 7230187-7 (Version None)
Quarter: 2011Q1

REPORT INFORMATION
  Report Type: 
  Country: None (occurrence: None)
  Receive Date: 20110118
  Receipt Date: 20110104
  Transmission Date: 20110831
  Serious: Yes (Hospitalization)
  Sender: FDA-Public Use
  Company Number: DE-CELGENEUS-062-50794-10101429

PATIENT
  Age: 36 Year
  Sex: Male

DRUGS (2)
  1. VIDAZA [Suspect]
     Route: 065
  2. VIDAZA [Suspect]
     Route: 065

REACTIONS (4)
  - PNEUMONIA [None]
  - INTERVERTEBRAL DISC PROTRUSION [None]
  - CYTOMEGALOVIRUS INFECTION [None]
  - PSEUDORADICULAR SYNDROME [None]
